FAERS Safety Report 5722067-0 (Version None)
Quarter: 2008Q2

REPORT INFORMATION
  Report Type: 
  Country: None (occurrence: None)
  Receive Date: 20080429
  Receipt Date: 20080421
  Transmission Date: 20081010
  Serious: Yes (Other)
  Sender: FDA-Public Use
  Company Number: US-PFIZER INC-2008034986

PATIENT
  Sex: Female

DRUGS (7)
  1. LIPITOR [Suspect]
     Indication: STENT PLACEMENT
  2. ALTACE [Concomitant]
     Dosage: TEXT:5 MG
  3. COREG [Concomitant]
  4. ATENOLOL [Concomitant]
  5. PLAVIX [Concomitant]
  6. CALTRATE + D [Concomitant]
  7. BONIVA [Concomitant]

REACTIONS (2)
  - ARTERIAL OCCLUSIVE DISEASE [None]
  - MYOCARDIAL INFARCTION [None]
